FAERS Safety Report 13081234 (Version 6)
Quarter: 2018Q1

REPORT INFORMATION
  Report Type: Spontaneous
  Country: US (occurrence: US)
  Receive Date: 20170103
  Receipt Date: 20180227
  Transmission Date: 20180508
  Serious: Yes (Death, Hospitalization)
  Sender: FDA-Public Use
  Company Number: US-JNJFOC-20161227172

PATIENT
  Sex: Male

DRUGS (2)
  1. INVEGA SUSTENNA [Suspect]
     Active Substance: PALIPERIDONE PALMITATE
     Indication: BIPOLAR DISORDER
     Dosage: IN UPPER ARM; APPROXIMATELY STARTED IN APR-2016
     Route: 030
     Dates: start: 201604
  2. INVEGA [Suspect]
     Active Substance: PALIPERIDONE
     Indication: BIPOLAR DISORDER
     Route: 048

REACTIONS (9)
  - Malaise [Unknown]
  - Myocardial infarction [Fatal]
  - Anxiety [Unknown]
  - Hospitalisation [Unknown]
  - Blood glucose decreased [Unknown]
  - Respiratory disorder [Unknown]
  - Panic reaction [Unknown]
  - Vomiting [Not Recovered/Not Resolved]
  - Adverse drug reaction [Unknown]

NARRATIVE: CASE EVENT DATE: 2016
